FAERS Safety Report 10825807 (Version 1)
Quarter: 2015Q1

REPORT INFORMATION
  Report Type: Spontaneous
  Country: PT (occurrence: PT)
  Receive Date: 20150219
  Receipt Date: 20150219
  Transmission Date: 20150721
  Serious: Yes (Hospitalization, Other)
  Sender: FDA-Public Use
  Company Number: PT-ROCHE-1538833

PATIENT
  Age: 56 Year
  Sex: Female

DRUGS (2)
  1. VEMURAFENIB [Suspect]
     Active Substance: VEMURAFENIB
     Indication: METASTATIC MALIGNANT MELANOMA
     Route: 065
  2. VEMURAFENIB [Suspect]
     Active Substance: VEMURAFENIB
     Route: 065

REACTIONS (5)
  - Ulcer [Recovering/Resolving]
  - Mucosal inflammation [Recovered/Resolved]
  - Pain [Unknown]
  - Tumour haemorrhage [Unknown]
  - Fatigue [Unknown]
